FAERS Safety Report 8959081 (Version 1)
Quarter: 2012Q4

REPORT INFORMATION
  Report Type: Report from Study
  Country: ES (occurrence: ES)
  Receive Date: 20121212
  Receipt Date: 20121212
  Transmission Date: 20130627
  Serious: Yes (Hospitalization)
  Sender: FDA-Public Use
  Company Number: ES-009507513-1212ESP003439

PATIENT
  Age: 57 Year

DRUGS (3)
  1. TEMODAL [Suspect]
     Indication: GLIOBLASTOMA
     Dosage: 160 mg/m2, qd
     Route: 048
     Dates: start: 20100917, end: 20121028
  2. BEVACIZUMAB [Suspect]
     Indication: GLIOBLASTOMA
     Dosage: 10 mg/m2, qd, 3 doses.
     Route: 042
     Dates: start: 20100917, end: 20121028
  3. DEXAMETHASONE [Concomitant]
     Indication: OEDEMA
     Dosage: 4 mg, UNK
     Route: 042
     Dates: start: 20101029, end: 20101108

REACTIONS (1)
  - Hypertensive crisis [Recovered/Resolved]
